FAERS Safety Report 10551526 (Version 1)
Quarter: 2014Q4

REPORT INFORMATION
  Report Type: Spontaneous
  Country: US (occurrence: US)
  Receive Date: 20141029
  Receipt Date: 20141029
  Transmission Date: 20150529
  Serious: No
  Sender: FDA-Public Use
  Company Number: US-PFIZER INC-2014290724

PATIENT
  Age: 23 Year
  Sex: Male
  Weight: 89.8 kg

DRUGS (2)
  1. ATROPEN AUTO-INJECTOR [Suspect]
     Active Substance: ATROPINE SULFATE
     Dosage: 300MG/ML IN 2ML INJECTED IN THUMB
  2. PRALIDOXIME CHLORIDE. [Suspect]
     Active Substance: PRALIDOXIME CHLORIDE
     Dosage: 600 MG, UNK

REACTIONS (5)
  - Wrong technique in drug usage process [Unknown]
  - Expired product administered [Unknown]
  - Peripheral swelling [Not Recovered/Not Resolved]
  - Tenderness [Not Recovered/Not Resolved]
  - Pain [Unknown]

NARRATIVE: CASE EVENT DATE: 20141019
